FAERS Safety Report 18479665 (Version 2)
Quarter: 2025Q3

REPORT INFORMATION
  Report Type: Spontaneous
  Country: BR (occurrence: BR)
  Receive Date: 20201109
  Receipt Date: 20250918
  Transmission Date: 20251020
  Serious: Yes (Hospitalization, Other)
  Sender: PFIZER
  Company Number: BR-MLMSERVICE-20201029-2558276-1

PATIENT
  Age: 3 Year
  Sex: Female

DRUGS (20)
  1. ETOPOSIDE [Suspect]
     Active Substance: ETOPOSIDE
     Indication: Acute monocytic leukaemia
     Dates: start: 2014
  2. ETOPOSIDE [Suspect]
     Active Substance: ETOPOSIDE
     Dates: start: 2014
  3. ETOPOSIDE [Suspect]
     Active Substance: ETOPOSIDE
     Dates: start: 2014
  4. IDARUBICIN HYDROCHLORIDE [Suspect]
     Active Substance: IDARUBICIN HYDROCHLORIDE
     Indication: Acute monocytic leukaemia
     Dates: start: 2014
  5. IDARUBICIN HYDROCHLORIDE [Suspect]
     Active Substance: IDARUBICIN HYDROCHLORIDE
     Dates: start: 2014
  6. IDARUBICIN HYDROCHLORIDE [Suspect]
     Active Substance: IDARUBICIN HYDROCHLORIDE
     Dates: start: 2014
  7. FLUDARABINE PHOSPHATE [Suspect]
     Active Substance: FLUDARABINE PHOSPHATE
     Indication: Acute monocytic leukaemia
     Dates: start: 201401
  8. MITOXANTRONE HYDROCHLORIDE [Suspect]
     Active Substance: MITOXANTRONE HYDROCHLORIDE
     Indication: Acute monocytic leukaemia
     Dates: start: 2014
  9. CYTARABINE [Suspect]
     Active Substance: CYTARABINE
     Indication: Acute monocytic leukaemia
     Dates: start: 2014
  10. CYTARABINE [Suspect]
     Active Substance: CYTARABINE
     Dates: start: 2014
  11. CYTARABINE [Suspect]
     Active Substance: CYTARABINE
     Dates: start: 2014
  12. CYTARABINE [Suspect]
     Active Substance: CYTARABINE
     Dates: start: 2014
  13. CYTARABINE [Suspect]
     Active Substance: CYTARABINE
     Dates: start: 2014
  14. CYTARABINE [Suspect]
     Active Substance: CYTARABINE
     Dates: start: 2014
  15. CYTARABINE [Suspect]
     Active Substance: CYTARABINE
     Dates: start: 2014
  16. MERCAPTOPURINE [Suspect]
     Active Substance: MERCAPTOPURINE
     Indication: Acute monocytic leukaemia
     Dates: start: 2014
  17. FILGRASTIM [Suspect]
     Active Substance: FILGRASTIM
     Indication: Acute monocytic leukaemia
     Dates: start: 2014
  18. CEFEPIME [Concomitant]
     Active Substance: CEFEPIME HYDROCHLORIDE
  19. VANCOMYCIN [Concomitant]
     Active Substance: VANCOMYCIN
  20. CEFUROXIME [Concomitant]
     Active Substance: CEFUROXIME

REACTIONS (3)
  - Haemophagocytic lymphohistiocytosis [Not Recovered/Not Resolved]
  - Pancytopenia [Unknown]
  - Febrile neutropenia [Unknown]

NARRATIVE: CASE EVENT DATE: 20140101
